FAERS Safety Report 17247430 (Version 1)
Quarter: 2020Q1

REPORT INFORMATION
  Report Type: Spontaneous
  Country: US (occurrence: US)
  Receive Date: 20200108
  Receipt Date: 20200108
  Transmission Date: 20200409
  Serious: Yes (Congenital Anomaly)
  Sender: FDA-Public Use
  Company Number: US-HIKMA PHARMACEUTICALS USA INC.-US-H14001-19-06405

PATIENT
  Sex: Female
  Weight: 1.35 kg

DRUGS (2)
  1. METHAMPHETAMINE [Suspect]
     Active Substance: METHAMPHETAMINE
     Indication: PRODUCT USED FOR UNKNOWN INDICATION
     Route: 065
  2. TETRAHYDROCANNABINOL [Suspect]
     Active Substance: DRONABINOL
     Indication: PRODUCT USED FOR UNKNOWN INDICATION
     Route: 065

REACTIONS (29)
  - Patent ductus arteriosus [Unknown]
  - Low set ears [Unknown]
  - Necrotising enterocolitis neonatal [Unknown]
  - Low birth weight baby [Unknown]
  - Atrial septal defect [Unknown]
  - Retrognathia [Unknown]
  - Renal salt-wasting syndrome [Unknown]
  - Cerebral ventricle dilatation [Unknown]
  - Congenital musculoskeletal anomaly [Unknown]
  - Spine malformation [Unknown]
  - Foetal exposure during pregnancy [Unknown]
  - Ventricular septal defect [Unknown]
  - Macroglossia [Unknown]
  - Brain malformation [Unknown]
  - Congenital nose malformation [Unknown]
  - Congenital adrenal gland hypoplasia [Unknown]
  - Hypercalciuria [Unknown]
  - Haematuria [Unknown]
  - Spleen malformation [Unknown]
  - Congenital renal cyst [Unknown]
  - Tethered cord syndrome [Unknown]
  - Chromosomal deletion [Unknown]
  - Premature baby [Unknown]
  - Meconium plug syndrome [Unknown]
  - Congenital hand malformation [Unknown]
  - Pulmonary malformation [Unknown]
  - Cardiomegaly [Unknown]
  - Cleft palate [Unknown]
  - Coloboma [Unknown]
